FAERS Safety Report 18626064 (Version 1)
Quarter: 2020Q4

REPORT INFORMATION
  Report Type: Report from Study
  Country: US (occurrence: US)
  Receive Date: 20201216
  Receipt Date: 20201216
  Transmission Date: 20210114
  Serious: Yes (Death)
  Sender: FDA-Public Use
  Company Number: US-SEATTLE GENETICS-2020SGN04690

PATIENT
  Sex: Female

DRUGS (2)
  1. TUCATINIB [Suspect]
     Active Substance: TUCATINIB
     Indication: BREAST CANCER FEMALE
  2. CAPECITABINE. [Suspect]
     Active Substance: CAPECITABINE
     Indication: BREAST CANCER FEMALE

REACTIONS (8)
  - Death [Fatal]
  - Nausea [Unknown]
  - Muscle spasms [Unknown]
  - Memory impairment [Unknown]
  - Tumour marker increased [Unknown]
  - Illness [Unknown]
  - Disturbance in attention [Unknown]
  - Vomiting [Unknown]
